FAERS Safety Report 10505537 (Version 1)
Quarter: 2014Q4

REPORT INFORMATION
  Report Type: Spontaneous
  Country: DE (occurrence: DE)
  Receive Date: 20141008
  Receipt Date: 20141008
  Transmission Date: 20150528
  Serious: Yes (Other)
  Sender: FDA-Public Use
  Company Number: DE-INCYTE CORPORATION-2014IN002850

PATIENT
  Sex: Female

DRUGS (13)
  1. L THYROXIN [Concomitant]
     Active Substance: LEVOTHYROXINE SODIUM
     Dosage: UNK UKN, UNK
  2. DIGIMERCK [Concomitant]
     Active Substance: DIGITOXIN
     Dosage: UNK UKN, UNK
  3. JAKAFI [Suspect]
     Active Substance: RUXOLITINIB
     Dosage: 15 MG, BID
     Route: 065
     Dates: start: 201407
  4. PANTOZOL [Concomitant]
     Active Substance: PANTOPRAZOLE SODIUM
     Dosage: UNK UKN, UNK
  5. RAMIPRIL. [Concomitant]
     Active Substance: RAMIPRIL
     Dosage: UNK UKN, UNK
  6. MARCUMAR [Concomitant]
     Active Substance: PHENPROCOUMON
     Dosage: UNK UKN, UNK
  7. JAKAFI [Suspect]
     Active Substance: RUXOLITINIB
     Dosage: 10 MG, BID
     Route: 065
     Dates: start: 201408
  8. SPIRONOLACTONE. [Concomitant]
     Active Substance: SPIRONOLACTONE
     Dosage: UNK UKN, UNK
  9. TORASEMIDE [Concomitant]
     Active Substance: TORSEMIDE
     Dosage: UNK UKN, UNK
  10. JAKAFI [Suspect]
     Active Substance: RUXOLITINIB
     Dosage: 10 MG, BID
     Route: 065
     Dates: start: 201401
  11. JAKAFI [Suspect]
     Active Substance: RUXOLITINIB
     Dosage: 5 MG, BID
     Route: 065
     Dates: start: 20131120
  12. METOPROLOL [Concomitant]
     Active Substance: METOPROLOL
     Dosage: UNK UKN, UNK
  13. HYDROCHLOROTHIAZIDE. [Concomitant]
     Active Substance: HYDROCHLOROTHIAZIDE
     Dosage: UNK UKN, UNK

REACTIONS (1)
  - Blood triglycerides increased [Unknown]
